FAERS Safety Report 7353794-X (Version None)
Quarter: 2011Q1

REPORT INFORMATION
  Report Type: 
  Country: None (occurrence: None)
  Receive Date: 20110315
  Receipt Date: 20110308
  Transmission Date: 20110831
  Serious: Yes (Other)
  Sender: FDA-Public Use
  Company Number: US-ABBOTT-11P-163-0710047-00

PATIENT
  Sex: Female

DRUGS (3)
  1. HUMIRA [Suspect]
     Indication: CROHN'S DISEASE
     Dosage: LOADING DOSE 160MG
     Dates: start: 20110101, end: 20110101
  2. HUMIRA [Suspect]
     Dosage: LOADING DOSE 80MG
     Dates: start: 20110201, end: 20110201
  3. HUMIRA [Suspect]
     Dates: start: 20110210, end: 20110224

REACTIONS (1)
  - DEAFNESS [None]
